FAERS Safety Report 8904436 (Version 1)
Quarter: 2012Q4

REPORT INFORMATION
  Report Type: 
  Country: US (occurrence: US)
  Receive Date: 20121112
  Receipt Date: 20121112
  Transmission Date: 20130627
  Serious: No
  Sender: FDA-Public Use
  Company Number: US-009507513-1210USA012771

PATIENT
  Sex: Male

DRUGS (2)
  1. AZASITE [Suspect]
     Indication: RETINAL TEAR
     Dosage: 1 Gtt, bid
     Route: 047
     Dates: start: 201205
  2. AZASITE [Suspect]
     Indication: CORNEAL ABRASION

REACTIONS (3)
  - Product quality issue [Unknown]
  - Inappropriate schedule of drug administration [Unknown]
  - No adverse event [Unknown]
